FAERS Safety Report 13991225 (Version 3)
Quarter: 2017Q4

REPORT INFORMATION
  Report Type: Report from Study
  Country: US (occurrence: US)
  Receive Date: 20170920
  Receipt Date: 20171012
  Transmission Date: 20180321
  Serious: Yes (Disabling)
  Sender: FDA-Public Use
  Company Number: PHEH2017US029724

PATIENT
  Age: 58 Year
  Sex: Female
  Weight: 81.6 kg

DRUGS (1)
  1. GILENYA [Suspect]
     Active Substance: FINGOLIMOD HYDROCHLORIDE
     Indication: MULTIPLE SCLEROSIS
     Dosage: 0.5 MG, QD
     Route: 048
     Dates: start: 20110908

REACTIONS (5)
  - Ankle fracture [Unknown]
  - Lower limb fracture [Unknown]
  - Cognitive disorder [Unknown]
  - Confusional state [Unknown]
  - Foot fracture [Unknown]

NARRATIVE: CASE EVENT DATE: 20170912
